FAERS Safety Report 24332694 (Version 1)
Quarter: 2024Q3

REPORT INFORMATION
  Report Type: Spontaneous
  Country: US (occurrence: None)
  Receive Date: 20240917
  Receipt Date: 20240917
  Transmission Date: 20241017
  Serious: Yes (Other)
  Sender: Public
  Company Number: None

PATIENT
  Age: 5 Year
  Sex: Male
  Weight: 23.5 kg

DRUGS (1)
  1. ASPARLAS [Suspect]
     Active Substance: CALASPARGASE PEGOL-MKNL
     Indication: B precursor type acute leukaemia
     Dosage: OTHER FREQUENCY : PER PROTOCOL;?
     Route: 042
     Dates: start: 20230914, end: 20231205

REACTIONS (2)
  - Infusion related reaction [None]
  - Therapy change [None]

NARRATIVE: CASE EVENT DATE: 20231031
